FAERS Safety Report 6145605-5 (Version None)
Quarter: 2009Q2

REPORT INFORMATION
  Report Type: 
  Country: None (occurrence: None)
  Receive Date: 20090407
  Receipt Date: 20090402
  Transmission Date: 20091009
  Serious: Yes (Life-Threatening, Hospitalization)
  Sender: FDA-Public Use
  Company Number: GB-TEVA-190057ISR

PATIENT
  Age: 75 Year
  Sex: Female

DRUGS (1)
  1. LORATADINE [Suspect]
     Indication: DRUG ERUPTION
     Route: 048
     Dates: start: 20090228, end: 20090228

REACTIONS (1)
  - ANGINA PECTORIS [None]
